FAERS Safety Report 16216707 (Version 1)
Quarter: 2019Q2

REPORT INFORMATION
  Report Type: Spontaneous
  Country: US (occurrence: US)
  Receive Date: 20190419
  Receipt Date: 20190419
  Transmission Date: 20190711
  Serious: No
  Sender: FDA-Public Use
  Company Number: US-BRISTOL-MYERS SQUIBB COMPANY-BMS-2019-035614

PATIENT
  Sex: Male
  Weight: 131.54 kg

DRUGS (2)
  1. ZYRTEC [Concomitant]
     Active Substance: CETIRIZINE HYDROCHLORIDE
     Indication: PRODUCT USED FOR UNKNOWN INDICATION
     Dosage: UNK
     Route: 065
  2. ELIQUIS [Suspect]
     Active Substance: APIXABAN
     Indication: CEREBROVASCULAR ACCIDENT PROPHYLAXIS
     Dosage: 5 MILLIGRAM, BID
     Route: 048
     Dates: start: 2014

REACTIONS (6)
  - Blood iron increased [Unknown]
  - Prothrombin time abnormal [Unknown]
  - Haematocrit abnormal [Recovering/Resolving]
  - Serum ferritin increased [Unknown]
  - Anaemia [Unknown]
  - Full blood count increased [Unknown]
